FAERS Safety Report 7318926-8 (Version None)
Quarter: 2011Q1

REPORT INFORMATION
  Report Type: 
  Country: None (occurrence: None)
  Receive Date: 20110228
  Receipt Date: 20110216
  Transmission Date: 20110831
  Serious: Yes (Hospitalization, Other)
  Sender: FDA-Public Use
  Company Number: US-ELI_LILLY_AND_COMPANY-US201012001997

PATIENT
  Sex: Male

DRUGS (10)
  1. ADVAIR DISKUS 100/50 [Concomitant]
     Dosage: UNK, 250/50, 2/D
  2. POTASSIUM CHLORIDE [Concomitant]
     Dosage: 20 MEQ, DAILY (1/D)
     Route: 048
  3. FORTEO [Suspect]
     Dosage: 20 UG, DAILY (1/D)
     Route: 065
  4. DIOVAN [Concomitant]
     Dosage: 320 MG, DAILY (1/D)
  5. KLOR-CON [Concomitant]
     Dosage: 10 MEQ, DAILY (1/D)
  6. FORTEO [Suspect]
     Indication: OSTEOPOROSIS
     Dosage: 20 UG, DAILY (1/D)
     Route: 065
     Dates: start: 20100701, end: 20110101
  7. WARFARIN SODIUM [Concomitant]
     Dosage: 1 MG, DAILY (1/D)
  8. COREG CR [Concomitant]
     Dosage: 40 MG, DAILY (1/D)
  9. TESTOSTERONE [Concomitant]
     Dosage: 1 D/F, OTHER (EVERY TWO WEEKS)
  10. PREDNISONE [Concomitant]
     Dosage: 15 MG, DAILY (1/D)

REACTIONS (11)
  - SHOULDER ARTHROPLASTY [None]
  - GENERALISED OEDEMA [None]
  - PULMONARY EMBOLISM [None]
  - MUSCULAR WEAKNESS [None]
  - THROMBOSIS [None]
  - INFECTION [None]
  - MALAISE [None]
  - ARTHRITIS [None]
  - BACK PAIN [None]
  - SINUSITIS [None]
  - OEDEMA PERIPHERAL [None]
